FAERS Safety Report 21881826 (Version 1)
Quarter: 2023Q1

REPORT INFORMATION
  Report Type: Report from Study
  Country: US (occurrence: US)
  Receive Date: 20230119
  Receipt Date: 20230119
  Transmission Date: 20230417
  Serious: No
  Sender: FDA-Public Use
  Company Number: US-ABBVIE-4244184

PATIENT
  Sex: Female

DRUGS (1)
  1. HUMIRA [Suspect]
     Active Substance: ADALIMUMAB
     Indication: Juvenile idiopathic arthritis
     Dosage: CITRATE FREE?LAST ADMIN DATE-2022?THE ONSET DATE FOR EVENT HUMIRA WAS NOT WORKING WAS 2022.
     Route: 058
     Dates: start: 20220512

REACTIONS (1)
  - Drug ineffective [Not Recovered/Not Resolved]
